FAERS Safety Report 16075506 (Version 2)
Quarter: 2019Q1

REPORT INFORMATION
  Report Type: Report from Study
  Country: KR (occurrence: KR)
  Receive Date: 20190315
  Receipt Date: 20190319
  Transmission Date: 20190418
  Serious: Yes (Death)
  Sender: FDA-Public Use
  Company Number: KR-ROCHE-2216705

PATIENT
  Age: 84 Year
  Sex: Female
  Weight: 42.05 kg

DRUGS (21)
  1. GANAKHAN [Concomitant]
     Indication: PROPHYLAXIS
     Route: 048
     Dates: start: 20181109
  2. OBINUTUZUMAB. [Suspect]
     Active Substance: OBINUTUZUMAB
     Dosage: CYCLE 1 DAY 2
     Route: 042
     Dates: start: 20181116, end: 20181116
  3. CHLORAMBUCIL [Suspect]
     Active Substance: CHLORAMBUCIL
     Dosage: CYCLE 1
     Route: 048
     Dates: start: 20181129, end: 20181129
  4. ELROTON [Concomitant]
     Indication: ANGINA PECTORIS
     Route: 048
     Dates: start: 2018
  5. OBINUTUZUMAB. [Suspect]
     Active Substance: OBINUTUZUMAB
     Dosage: CYCLE 3 DAY 1
     Route: 042
     Dates: start: 20190109, end: 20190109
  6. CHLORAMBUCIL [Suspect]
     Active Substance: CHLORAMBUCIL
     Indication: CHRONIC LYMPHOCYTIC LEUKAEMIA
     Dosage: CYCLE 1
     Route: 048
     Dates: start: 20181115, end: 20181115
  7. TACENOL [Concomitant]
     Indication: PREMEDICATION
     Route: 048
     Dates: start: 20181115
  8. SEPTRIN [Concomitant]
     Active Substance: SULFAMETHOXAZOLE\TRIMETHOPRIM
     Indication: PROPHYLAXIS
     Route: 048
     Dates: start: 20181115
  9. ZYLORIC [Concomitant]
     Active Substance: ALLOPURINOL
     Indication: PROPHYLAXIS
     Route: 048
     Dates: start: 20181115
  10. ZOYLEX [Concomitant]
     Indication: PROPHYLAXIS
     Route: 048
     Dates: start: 20181115
  11. CHLORAMBUCIL [Suspect]
     Active Substance: CHLORAMBUCIL
     Dosage: CYCLE 3
     Route: 048
     Dates: start: 20190109, end: 20190109
  12. DEXAMETHASONE DISODIUM PHOSPHATE [Concomitant]
     Active Substance: DEXAMETHASONE SODIUM PHOSPHATE
     Indication: PREMEDICATION
     Dosage: 4 AMP (5 MG/1 ML)
     Route: 042
     Dates: start: 20181115
  13. ALDACTONE (SOUTH KOREA) [Concomitant]
     Indication: ACUTE KIDNEY INJURY
     Route: 048
     Dates: start: 20181002
  14. OBINUTUZUMAB. [Suspect]
     Active Substance: OBINUTUZUMAB
     Indication: CHRONIC LYMPHOCYTIC LEUKAEMIA
     Dosage: CYCLE 1 DAY 1
     Route: 042
     Dates: start: 20181115, end: 20181115
  15. OBINUTUZUMAB. [Suspect]
     Active Substance: OBINUTUZUMAB
     Dosage: CYCLE 2 DAY 1
     Route: 042
     Dates: start: 20181210, end: 20181210
  16. CHLORAMBUCIL [Suspect]
     Active Substance: CHLORAMBUCIL
     Dosage: CYCLE 2
     Route: 048
     Dates: start: 20181210, end: 20181210
  17. CHLORAMBUCIL [Suspect]
     Active Substance: CHLORAMBUCIL
     Dosage: CYCLE 2
     Route: 048
     Dates: start: 20181224, end: 20181224
  18. CHLORPHENIRAMINE MALEATE. [Concomitant]
     Active Substance: CHLORPHENIRAMINE MALEATE
     Indication: PREMEDICATION
     Dosage: 1 AMP (4 MG/2 ML)
     Route: 042
     Dates: start: 20181115
  19. VANCO [Concomitant]
     Active Substance: VANCOMYCIN
     Route: 042
  20. LIXIANA [Concomitant]
     Active Substance: EDOXABAN TOSYLATE
     Indication: ANGINA PECTORIS
     Route: 048
     Dates: start: 20180919
  21. CRESTOR [Concomitant]
     Active Substance: ROSUVASTATIN CALCIUM
     Indication: ANGINA PECTORIS
     Route: 048
     Dates: start: 2018

REACTIONS (4)
  - Alanine aminotransferase increased [Unknown]
  - Colon cancer [Fatal]
  - Feeling cold [Recovered/Resolved]
  - Aspartate aminotransferase increased [Unknown]

NARRATIVE: CASE EVENT DATE: 20181115
